FAERS Safety Report 25563904 (Version 3)
Quarter: 2025Q4

REPORT INFORMATION
  Report Type: Spontaneous
  Country: EU (occurrence: EU)
  Receive Date: 20250716
  Receipt Date: 20251113
  Transmission Date: 20260118
  Serious: Yes (Other)
  Sender: ABBVIE
  Company Number: EU-BRISTOL-MYERS SQUIBB COMPANY-2025-095498

PATIENT
  Age: 85 Year
  Sex: Male

DRUGS (2)
  1. VENETOCLAX [Suspect]
     Active Substance: VENETOCLAX
     Indication: Blastic plasmacytoid dendritic cell neoplasia
     Route: 048
  2. AZACITIDINE [Suspect]
     Active Substance: AZACITIDINE
     Indication: Blastic plasmacytoid dendritic cell neoplasia
     Route: 065

REACTIONS (5)
  - Renal failure [Recovering/Resolving]
  - Electrolyte imbalance [Recovering/Resolving]
  - Hyperuricaemia [Recovering/Resolving]
  - Tumour lysis syndrome [Recovering/Resolving]
  - Off label use [Recovering/Resolving]
